FAERS Safety Report 4617979-5 (Version None)
Quarter: 2005Q1

REPORT INFORMATION
  Report Type: 
  Country: None (occurrence: None)
  Receive Date: 20050322
  Receipt Date: 20050315
  Transmission Date: 20050727
  Serious: Yes (Hospitalization)
  Sender: FDA-Public Use
  Company Number: 2005GB00533

PATIENT
  Age: 74 Year
  Sex: Male

DRUGS (9)
  1. ATENOLOL [Suspect]
     Dosage: 100 MG QD PO
     Route: 048
     Dates: start: 20010101, end: 20050225
  2. GTN [Concomitant]
  3. TRAMADOL [Concomitant]
  4. DICLOFENAC SODIUM [Concomitant]
  5. ATORVASTATIN CALCIUM [Concomitant]
  6. ISMN ^GENERICON^ [Concomitant]
  7. GABAPENTIN [Concomitant]
  8. LANSOPRAZOLE [Concomitant]
  9. AMIODARONE [Concomitant]

REACTIONS (5)
  - BRADYCARDIA [None]
  - COUGH [None]
  - DYSPNOEA [None]
  - FEELING ABNORMAL [None]
  - HEART RATE IRREGULAR [None]
